FAERS Safety Report 21521249 (Version 1)
Quarter: 2022Q4

REPORT INFORMATION
  Report Type: Spontaneous
  Country: US (occurrence: US)
  Receive Date: 20221028
  Receipt Date: 20221028
  Transmission Date: 20230113
  Serious: Yes (Other)
  Sender: FDA-Public Use
  Company Number: US-TAKEDA-2022TUS079803

PATIENT

DRUGS (1)
  1. ACTOS [Suspect]
     Active Substance: PIOGLITAZONE HYDROCHLORIDE
     Indication: Diabetes mellitus
     Dosage: 30 MILLIGRAM
     Route: 048

REACTIONS (1)
  - Gallbladder neoplasm [Unknown]
